FAERS Safety Report 4743324-0 (Version None)
Quarter: 2005Q3

REPORT INFORMATION
  Report Type: 
  Country: None (occurrence: None)
  Receive Date: 20050811
  Receipt Date: 20050726
  Transmission Date: 20060218
  Serious: Yes (Hospitalization)
  Sender: FDA-Public Use
  Company Number: FABR-11182

PATIENT
  Sex: Male

DRUGS (1)
  1. FABRAZYME [Suspect]
     Indication: FABRY'S DISEASE

REACTIONS (7)
  - ABDOMINAL PAIN UPPER [None]
  - DIALYSIS [None]
  - DYSPNOEA EXERTIONAL [None]
  - PAIN IN JAW [None]
  - RENAL FAILURE [None]
  - RENAL TRANSPLANT [None]
  - WEIGHT DECREASED [None]
